FAERS Safety Report 9854022 (Version 3)
Quarter: 2014Q2

REPORT INFORMATION
  Report Type: Report from Study
  Country: DE (occurrence: DE)
  Receive Date: 20140129
  Receipt Date: 20140409
  Transmission Date: 20141212
  Serious: Yes (Death)
  Sender: FDA-Public Use
  Company Number: DE-UCBSA-110281

PATIENT
  Age: 87 Year
  Sex: Female
  Weight: 43 kg

DRUGS (9)
  1. NEUPRO [Suspect]
     Indication: PARKINSON^S DISEASE
     Dates: start: 20110125, end: 20110706
  2. NEUPRO [Suspect]
     Indication: PARKINSON^S DISEASE
     Dates: start: 20110118, end: 20110124
  3. NEUPRO [Suspect]
     Indication: PARKINSON^S DISEASE
     Dates: start: 20110112, end: 20110117
  4. ISICOM [Concomitant]
     Indication: PARKINSON^S DISEASE
     Route: 048
     Dates: start: 20100610, end: 201303
  5. SEROQUEL [Concomitant]
     Indication: PSYCHOTIC DISORDER DUE TO A GENERAL MEDICAL CONDITION
     Route: 048
     Dates: start: 20090910, end: 201303
  6. SEROQUEL [Concomitant]
     Indication: PARKINSON^S DISEASE
     Route: 048
     Dates: start: 20090910, end: 201303
  7. LEVOCARB [Concomitant]
     Indication: PARKINSON^S DISEASE
     Dosage: 100/25 MG ONCE DAILY
     Route: 048
     Dates: start: 20100610, end: 201303
  8. RISPERIDONE [Concomitant]
     Indication: PARKINSON^S DISEASE
     Route: 048
     Dates: start: 20121022, end: 201303
  9. ARLEVERT [Concomitant]
     Indication: VERTIGO
     Route: 048
     Dates: end: 201303

REACTIONS (1)
  - Death [Fatal]
